FAERS Safety Report 13006288 (Version 1)
Quarter: 2016Q4

REPORT INFORMATION
  Report Type: Spontaneous
  Country: US (occurrence: US)
  Receive Date: 20161207
  Receipt Date: 20161207
  Transmission Date: 20170207
  Serious: No
  Sender: FDA-Public Use
  Company Number: None

PATIENT

DRUGS (2)
  1. LISINOPRIL LISINOPRIL [Suspect]
     Active Substance: LISINOPRIL
     Route: 048
  2. LISINOPRIL LISINOPRIL [Suspect]
     Active Substance: LISINOPRIL

REACTIONS (4)
  - Hypotension [None]
  - Wrong patient received medication [None]
  - Wrong drug administered [None]
  - Dizziness [None]
